FAERS Safety Report 10883014 (Version 1)
Quarter: 2015Q1

REPORT INFORMATION
  Report Type: Spontaneous
  Country: US (occurrence: None)
  Receive Date: 20150226
  Receipt Date: 20150226
  Transmission Date: 20150721
  Serious: Yes (Other)
  Sender: FDA-Public Use
  Company Number: None

PATIENT
  Age: 46 Year
  Sex: Female
  Weight: 95.26 kg

DRUGS (4)
  1. METHYLPREDNISOLONE. [Suspect]
     Active Substance: METHYLPREDNISOLONE
     Indication: FALL
     Dosage: 7 DAY --
     Dates: start: 20150210, end: 20150218
  2. HYDROCHOLAZIDE [Concomitant]
  3. METOPROLOL [Concomitant]
     Active Substance: METOPROLOL
  4. IBPROFEN [Concomitant]

REACTIONS (4)
  - Pain [None]
  - Wound [None]
  - Laceration [None]
  - Discomfort [None]

NARRATIVE: CASE EVENT DATE: 20150223
